FAERS Safety Report 20236572 (Version 3)
Quarter: 2022Q1

REPORT INFORMATION
  Report Type: Spontaneous
  Country: DE (occurrence: DE)
  Receive Date: 20211228
  Receipt Date: 20220119
  Transmission Date: 20220424
  Serious: Yes (Hospitalization)
  Sender: FDA-Public Use
  Company Number: DE-ANIPHARMA-2021-DE-000286

PATIENT
  Age: 70 Year
  Sex: Male

DRUGS (14)
  1. CANDESARTAN CILEXETIL [Suspect]
     Active Substance: CANDESARTAN CILEXETIL
     Indication: Product used for unknown indication
     Dosage: 16 MG BID
     Route: 048
  2. SEDACUR FORTE BER [Concomitant]
     Dosage: 75/23/45 MILLIGRAM, TID
     Route: 048
  3. APIXABAN [Concomitant]
     Active Substance: APIXABAN
     Dosage: 5 MG BID
     Route: 048
  4. KALIUM MAGNESIUM [Concomitant]
     Dosage: BID
     Route: 048
  5. METOPROLOL [Concomitant]
     Active Substance: METOPROLOL
     Dosage: 47.5 MG BID
     Route: 048
  6. METAMIZOL [Concomitant]
     Active Substance: METAMIZOLE SODIUM
     Dosage: 500 MG QID
     Route: 048
  7. METFORMIN [Suspect]
     Active Substance: METFORMIN HYDROCHLORIDE
     Dosage: 1000 MG BID
     Route: 048
  8. TORSEMIDE [Suspect]
     Active Substance: TORSEMIDE
     Dosage: 10 MG QD
     Route: 048
  9. ALLOPURINOL [Suspect]
     Active Substance: ALLOPURINOL
     Dosage: 300 MG QD
     Route: 048
  10. XIPAMIDE [Suspect]
     Active Substance: XIPAMIDE
     Dosage: 20 MG QD
     Route: 048
  11. DICLOFENAC [Suspect]
     Active Substance: DICLOFENAC
     Dosage: 75 MG BID
     Route: 048
  12. TAMSULOSIN [Concomitant]
     Active Substance: TAMSULOSIN
     Dosage: 4 MG QD
     Route: 048
  13. ROSUVASTATIN [Concomitant]
     Active Substance: ROSUVASTATIN
     Dosage: 10 MG QD
     Route: 048
  14. ASPIRIN [Concomitant]
     Active Substance: ASPIRIN
     Dosage: 100 MG QD
     Route: 048

REACTIONS (4)
  - Tachycardia [Unknown]
  - Product prescribing error [Unknown]
  - Labelled drug-drug interaction medication error [Unknown]
  - Contraindicated product administered [Unknown]
